FAERS Safety Report 5565499-6 (Version None)
Quarter: 2007Q4

REPORT INFORMATION
  Report Type: 
  Country: None (occurrence: None)
  Receive Date: 20071130
  Receipt Date: 20070907
  Transmission Date: 20080405
  Serious: No
  Sender: FDA-Public Use
  Company Number: US200709001645

PATIENT
  Age: 55 Year
  Sex: Female
  Weight: 109.3 kg

DRUGS (8)
  1. BYETTA [Suspect]
     Indication: TYPE 2 DIABETES MELLITUS
     Dosage: 5 UG, 2/D, SUBCUTANEOUS ; 10 UG, 2/D, SUBCUTANEOUS
     Route: 058
     Dates: start: 20070201, end: 20070101
  2. BYETTA [Suspect]
     Indication: TYPE 2 DIABETES MELLITUS
     Dosage: 5 UG, 2/D, SUBCUTANEOUS ; 10 UG, 2/D, SUBCUTANEOUS
     Route: 058
     Dates: start: 20070101, end: 20070601
  3. METFORMIN HCL [Concomitant]
  4. PRANDIN /USA/ (REPAGLINIDE) [Concomitant]
  5. GLIPIZIDE [Concomitant]
  6. LANTUS [Concomitant]
  7. HUMALOG [Concomitant]
  8. SYMLIN [Concomitant]

REACTIONS (3)
  - BLOOD GLUCOSE ABNORMAL [None]
  - DYSPEPSIA [None]
  - WEIGHT INCREASED [None]
